FAERS Safety Report 8389753-8 (Version None)
Quarter: 2012Q2

REPORT INFORMATION
  Report Type: 
  Country: None (occurrence: None)
  Receive Date: 20120524
  Receipt Date: 20120524
  Transmission Date: 20120825
  Serious: Yes (Death)
  Sender: FDA-Public Use
  Company Number: None

PATIENT
  Age: 63 Year
  Sex: Male

DRUGS (7)
  1. ZOFRAN [Concomitant]
  2. DECADRON [Concomitant]
  3. AMBIEN [Concomitant]
  4. REVLIMID [Suspect]
     Indication: MULTIPLE MYELOMA
     Dosage: 10MG DAILY ORALLY
     Route: 048
     Dates: start: 20090901, end: 20120501
  5. LASIX [Concomitant]
  6. COUMADIN [Concomitant]
  7. ALBUTEROL [Concomitant]

REACTIONS (1)
  - HOSPICE CARE [None]
